FAERS Safety Report 6970611-8 (Version None)
Quarter: 2010Q3

REPORT INFORMATION
  Report Type: 
  Country: None (occurrence: None)
  Receive Date: 20100908
  Receipt Date: 20100831
  Transmission Date: 20110219
  Serious: Yes (Other)
  Sender: FDA-Public Use
  Company Number: GB-BAYER-201038221GPV

PATIENT

DRUGS (1)
  1. MABCAMPATH [Suspect]
     Indication: CROHN'S DISEASE
     Dates: start: 20070101

REACTIONS (2)
  - AMYOTROPHIC LATERAL SCLEROSIS [None]
  - NERVE DEGENERATION [None]
